FAERS Safety Report 10014970 (Version 1)
Quarter: 2014Q1

REPORT INFORMATION
  Report Type: Spontaneous
  Country: CH (occurrence: CH)
  Receive Date: 20140317
  Receipt Date: 20140317
  Transmission Date: 20141002
  Serious: Yes (Other)
  Sender: FDA-Public Use
  Company Number: CH-SA-2014SA030264

PATIENT
  Age: 79 Year
  Sex: Male

DRUGS (9)
  1. ZOLPIDEM TARTRATE [Suspect]
     Indication: SCHIZOPHRENIA
     Route: 048
     Dates: start: 20130510, end: 20130522
  2. ZOLPIDEM TARTRATE [Suspect]
     Indication: PSYCHOTIC DISORDER
     Route: 048
     Dates: start: 20130510, end: 20130522
  3. PSYCHOPAX [Suspect]
     Indication: SCHIZOPHRENIA
     Route: 065
     Dates: start: 20130510, end: 20130522
  4. PSYCHOPAX [Suspect]
     Indication: PSYCHOTIC DISORDER
     Route: 065
     Dates: start: 20130510, end: 20130522
  5. QUILONORM [Suspect]
     Indication: SCHIZOPHRENIA
     Route: 065
     Dates: start: 201304
  6. QUILONORM [Suspect]
     Indication: PSYCHOTIC DISORDER
     Route: 065
     Dates: start: 201304
  7. CLOPIXOL [Suspect]
     Indication: SCHIZOPHRENIA
     Route: 065
     Dates: start: 20130430, end: 20130522
  8. CLOPIXOL [Suspect]
     Indication: PSYCHOTIC DISORDER
     Route: 065
     Dates: start: 20130430, end: 20130522
  9. RISPERIDONE [Concomitant]

REACTIONS (3)
  - Parkinson^s disease [Not Recovered/Not Resolved]
  - Fall [Recovered/Resolved]
  - Femur fracture [Recovered/Resolved]
